FAERS Safety Report 16480289 (Version 24)
Quarter: 2020Q1

REPORT INFORMATION
  Report Type: Spontaneous
  Country: US (occurrence: US)
  Receive Date: 20190626
  Receipt Date: 20200326
  Transmission Date: 20200409
  Serious: Yes (Other)
  Sender: FDA-Public Use
  Company Number: US-PFIZER INC-2019271515

PATIENT
  Age: 46 Year
  Sex: Female
  Weight: 84 kg

DRUGS (44)
  1. EFFEXOR XR [Interacting]
     Active Substance: VENLAFAXINE HYDROCHLORIDE
     Dosage: 150 MG, 2X/DAY [1 IN MORNING, 1 IN AFTERNOON]
     Route: 048
     Dates: start: 20190527
  2. SIMVASTATIN. [Concomitant]
     Active Substance: SIMVASTATIN
     Indication: BLOOD CHOLESTEROL ABNORMAL
     Dosage: 20 MG, 1X/DAY,ONCE AT NIGHT
     Route: 048
  3. SIMVASTATIN. [Concomitant]
     Active Substance: SIMVASTATIN
     Dosage: 20 MG, UNK
  4. PIOGLITAZONE. [Concomitant]
     Active Substance: PIOGLITAZONE
     Dosage: 15 MG, UNK
     Route: 048
  5. KIRKLAND SIGNATURE B12 [Concomitant]
     Dosage: 5000 UG, UNK
     Dates: start: 201906
  6. SUNDOWN NATURALS VITAMIN C [Concomitant]
     Dosage: 1200 MG, UNK
     Dates: start: 20200112
  7. SALMON OIL [Concomitant]
     Active Substance: FISH OIL
     Dosage: UNK
  8. QUETIAPINE FUMARATE. [Interacting]
     Active Substance: QUETIAPINE FUMARATE
     Indication: SLEEP DISORDER
     Dosage: 200 MG, 1X/DAY (AT BEDTIME)
     Route: 048
     Dates: start: 20190604
  9. CURCUMIN [Concomitant]
     Active Substance: CURCUMIN
     Dosage: UNK [1 SCOOP 4 GRAMS]
     Dates: start: 201910
  10. EFFEXOR XR [Interacting]
     Active Substance: VENLAFAXINE HYDROCHLORIDE
     Indication: BIPOLAR I DISORDER
     Dosage: 225 MG, DAILY (150 MG THEN 75 MG AT NIGHT)
     Route: 048
  11. VITAMIN B12 [Concomitant]
     Active Substance: CYANOCOBALAMIN
     Indication: RED BLOOD CELL ABNORMALITY
     Dosage: UNK
  12. LITHIUM CARBONATE. [Concomitant]
     Active Substance: LITHIUM CARBONATE
     Indication: AFFECTIVE DISORDER
     Dosage: 300 MG, 1X/DAY (TAKE 1 CAPSULE AT BEDTIME) (TAKE WITH 900 MG OF ER)
     Route: 048
  13. EFFEXOR XR [Interacting]
     Active Substance: VENLAFAXINE HYDROCHLORIDE
     Indication: FEELING ABNORMAL
     Dosage: UNK
  14. EFFEXOR XR [Interacting]
     Active Substance: VENLAFAXINE HYDROCHLORIDE
     Indication: SLEEP DISORDER
     Dosage: UNK
  15. FENOFIBRATE. [Concomitant]
     Active Substance: FENOFIBRATE
     Indication: BLOOD CHOLESTEROL
     Dosage: 145 MG, 1X/DAY,ONE TIME A DAY AT NIGHT
     Route: 048
  16. PIOGLITAZONE. [Concomitant]
     Active Substance: PIOGLITAZONE
     Dosage: 15 MG, 1X/DAY
     Route: 048
  17. METHYL FOLATE [Concomitant]
     Active Substance: LEVOMEFOLATE CALCIUM
     Dosage: 800 UG, UNK
     Dates: start: 201906
  18. EFFEXOR XR [Interacting]
     Active Substance: VENLAFAXINE HYDROCHLORIDE
     Indication: SEDATION
     Dosage: 150 MG, 2X/DAY
     Route: 048
     Dates: start: 2013, end: 20150428
  19. METFORMIN [Concomitant]
     Active Substance: METFORMIN HYDROCHLORIDE
     Indication: DIABETES MELLITUS
     Dosage: 1000 MG, 2X/DAY
     Route: 048
  20. PIOGLITAZONE. [Concomitant]
     Active Substance: PIOGLITAZONE
     Indication: BLOOD GLUCOSE ABNORMAL
     Dosage: 50 MG, 1X/DAY
     Route: 048
  21. LUNESTA [Concomitant]
     Active Substance: ESZOPICLONE
     Dosage: 2 MG, UNK
  22. APPLE CIDER VINEGAR [Concomitant]
     Active Substance: APPLE CIDER VINEGAR
     Dosage: UNK
     Dates: start: 201903, end: 201911
  23. METHYLFOLATE [Concomitant]
     Active Substance: LEVOMEFOLATE CALCIUM
     Dosage: 800 UG, UNK
     Dates: start: 201906
  24. EFFEXOR XR [Interacting]
     Active Substance: VENLAFAXINE HYDROCHLORIDE
     Indication: INSOMNIA
     Dosage: 300 MG, DAILY (ONE 150MG CAPSULE IN THE MORNING AND TWO 75MG CAPSULES AT NIGHT)
     Route: 048
  25. EFFEXOR XR [Interacting]
     Active Substance: VENLAFAXINE HYDROCHLORIDE
     Indication: DEVELOPMENTAL REGRESSION
     Dosage: UNK
     Dates: start: 2019
  26. EFFEXOR XR [Interacting]
     Active Substance: VENLAFAXINE HYDROCHLORIDE
     Dosage: UNK
     Dates: start: 2013, end: 2015
  27. EFFEXOR XR [Interacting]
     Active Substance: VENLAFAXINE HYDROCHLORIDE
     Dosage: 150 MG, 2X/DAY [1 IN MORNING, 1 IN AFTERNOON]
     Route: 048
     Dates: start: 20190527
  28. LUNESTA [Concomitant]
     Active Substance: ESZOPICLONE
     Indication: INSOMNIA
     Dosage: UNK
     Dates: start: 2019
  29. LUNESTA [Concomitant]
     Active Substance: ESZOPICLONE
     Dosage: 1 MG, UNK
  30. LITHIUM. [Concomitant]
     Active Substance: LITHIUM
     Indication: MOOD SWINGS
     Dosage: 900 MG, 1X/DAY [TAKE 2 TABLET BY EXTENDED RELEASE AT BEDTIME]
     Route: 048
  31. NATURE MADE MULTI FOR HER 50+ [Concomitant]
     Dosage: UNK
     Dates: end: 20191216
  32. METFORMIN HCL [Concomitant]
     Active Substance: METFORMIN HYDROCHLORIDE
     Dosage: 1000 MG, UNK
  33. KIRKLAND SIGNATURE SUPER B COMPLEX [Concomitant]
     Dosage: 5000 UG, UNK
  34. FENOFIBRATE. [Concomitant]
     Active Substance: FENOFIBRATE
     Dosage: 145 MG, UNK
  35. LUNESTA [Concomitant]
     Active Substance: ESZOPICLONE
     Indication: AGITATION
     Dosage: 3 MG, UNK
  36. PALIPERIDONE. [Concomitant]
     Active Substance: PALIPERIDONE
     Indication: AFFECTIVE DISORDER
     Dosage: 156 MG/ML, Q 28 DAYS
     Route: 030
  37. KIRKLAND SIGNATURE SUPER B COMPLEX [Concomitant]
     Dosage: 500 UG, UNK
     Dates: start: 201906
  38. EFFEXOR XR [Suspect]
     Active Substance: VENLAFAXINE HYDROCHLORIDE
     Indication: DEPRESSION
     Dosage: 200 MG, DAILY (ONE 50 MG CAPSULE IN THE MORNING AND TWO 75 MG CAPSULES IN THE EVENING)
     Route: 048
     Dates: start: 2004
  39. EFFEXOR XR [Interacting]
     Active Substance: VENLAFAXINE HYDROCHLORIDE
     Indication: MEMORY IMPAIRMENT
     Dosage: 150 MG, 2X/DAY (1 CAPSULE IN THE MORNING AND 1 AT NIGHT (TOTAL OF 300MG))
     Route: 048
     Dates: start: 20190531
  40. EFFEXOR XR [Interacting]
     Active Substance: VENLAFAXINE HYDROCHLORIDE
     Indication: INJURY
     Dosage: UNK
  41. LITHIUM. [Concomitant]
     Active Substance: LITHIUM
     Indication: MOOD SWINGS
     Dosage: 450 MG, UNK [INCREASED HER LITHIUM]
  42. MELATONIN [Concomitant]
     Active Substance: MELATONIN
     Dosage: UNK
  43. SUNDOWN NATURALS VITAMIN C [Concomitant]
     Dosage: UNK
     Dates: start: 20191216
  44. SUNDOWN FISH OIL [Concomitant]
     Dosage: 1200 MG, UNK
     Dates: start: 20200112

REACTIONS (27)
  - Suicidal ideation [Unknown]
  - Drug interaction [Unknown]
  - Somnolence [Recovered/Resolved]
  - Agitation [Recovered/Resolved]
  - Frustration tolerance decreased [Not Recovered/Not Resolved]
  - Sleep deficit [Not Recovered/Not Resolved]
  - Serotonin syndrome [Unknown]
  - Drug dependence [Not Recovered/Not Resolved]
  - Drug ineffective [Unknown]
  - Sedation [Recovered/Resolved]
  - Cerebral disorder [Unknown]
  - Condition aggravated [Unknown]
  - Mania [Unknown]
  - Prescribed overdose [Unknown]
  - Drug effective for unapproved indication [Unknown]
  - Neurotransmitter level altered [Unknown]
  - General physical health deterioration [Unknown]
  - Off label use [Unknown]
  - Daydreaming [Unknown]
  - Feeling hot [Not Recovered/Not Resolved]
  - Insomnia [Not Recovered/Not Resolved]
  - Suspected counterfeit product [Unknown]
  - Memory impairment [Not Recovered/Not Resolved]
  - Sleep apnoea syndrome [Unknown]
  - Drug ineffective for unapproved indication [Unknown]
  - Headache [Recovered/Resolved]
  - Sedation complication [Not Recovered/Not Resolved]

NARRATIVE: CASE EVENT DATE: 2013
